FAERS Safety Report 8953710 (Version 1)
Quarter: 2012Q4

REPORT INFORMATION
  Report Type: 
  Country: FR (occurrence: FR)
  Receive Date: 20121206
  Receipt Date: 20121206
  Transmission Date: 20130627
  Serious: Yes (Other)
  Sender: FDA-Public Use
  Company Number: FR-MYLANLABS-2012S1024716

PATIENT
  Sex: Male

DRUGS (7)
  1. CYCLOPHOSPHAMIDE [Suspect]
     Indication: BURKITT^S LYMPHOMA STAGE IV
     Route: 065
  2. VINCRISTINE [Suspect]
     Indication: BURKITT^S LYMPHOMA STAGE IV
     Route: 065
  3. PREDNISONE [Suspect]
     Indication: BURKITT^S LYMPHOMA STAGE IV
     Route: 065
  4. DOXORUBICIN [Suspect]
     Indication: BURKITT^S LYMPHOMA STAGE IV
     Route: 065
  5. METHOTREXATE [Suspect]
     Indication: BURKITT^S LYMPHOMA STAGE IV
     Route: 065
  6. CYTARABINE [Suspect]
     Indication: BURKITT^S LYMPHOMA STAGE IV
     Route: 065
  7. ETOPOSIDE [Suspect]
     Indication: BURKITT^S LYMPHOMA STAGE IV
     Route: 065

REACTIONS (2)
  - Neutropenia [Unknown]
  - Cystitis haemorrhagic [Unknown]
